FAERS Safety Report 5726207-9 (Version None)
Quarter: 2008Q2

REPORT INFORMATION
  Report Type: 
  Country: None (occurrence: None)
  Receive Date: 20080502
  Receipt Date: 20080424
  Transmission Date: 20081010
  Serious: Yes (Other)
  Sender: FDA-Public Use
  Company Number: FR-JNJFOC-20080400839

PATIENT
  Sex: Female
  Weight: 58 kg

DRUGS (3)
  1. KETODERM [Suspect]
     Route: 061
  2. KETODERM [Suspect]
     Indication: FUNGAL INFECTION
     Route: 061
  3. HALDOL [Concomitant]
     Route: 030

REACTIONS (1)
  - ASTHMA [None]
